FAERS Safety Report 10630470 (Version 2)
Quarter: 2014Q4

REPORT INFORMATION
  Report Type: Spontaneous
  Country: US (occurrence: US)
  Receive Date: 20141205
  Receipt Date: 20141205
  Transmission Date: 20150529
  Serious: No
  Sender: FDA-Public Use
  Company Number: US-BRISTOL-MYERS SQUIBB COMPANY-19331107

PATIENT
  Age: 68 Year
  Sex: Male
  Weight: 113.4 kg

DRUGS (19)
  1. SYMLIN [Suspect]
     Active Substance: PRAMLINTIDE ACETATE
     Indication: TYPE 2 DIABETES MELLITUS
     Route: 058
     Dates: start: 20060317, end: 20060322
  2. AMBIEN [Concomitant]
     Active Substance: ZOLPIDEM TARTRATE
     Route: 048
  3. BYETTA [Suspect]
     Active Substance: EXENATIDE
     Indication: PRODUCT USED FOR UNKNOWN INDICATION
     Dosage: BYETTA INJECTION
     Route: 058
     Dates: start: 20050907, end: 20060310
  4. GLUCOTROL [Concomitant]
     Active Substance: GLIPIZIDE
     Route: 048
     Dates: start: 1991
  5. METOPROLOL [Concomitant]
     Active Substance: METOPROLOL
  6. SYMLIN [Suspect]
     Active Substance: PRAMLINTIDE ACETATE
     Indication: TYPE 2 DIABETES MELLITUS
     Dosage: SYMLIN INJECTION
     Route: 058
     Dates: start: 20060322
  7. INSULIN 70/30 [Concomitant]
     Active Substance: INSULIN HUMAN
     Dosage: DOSE UNIT:20
     Dates: start: 20060312, end: 20060317
  8. NOVOLOG [Concomitant]
     Active Substance: INSULIN ASPART
     Dates: start: 20060311
  9. NAFTIN [Concomitant]
     Active Substance: NAFTIFINE HYDROCHLORIDE
  10. AVANDIA [Concomitant]
     Active Substance: ROSIGLITAZONE MALEATE
     Route: 048
     Dates: start: 2003
  11. PREVACID [Concomitant]
     Active Substance: LANSOPRAZOLE
     Route: 048
  12. GLUCOPHAGE [Concomitant]
     Active Substance: METFORMIN HYDROCHLORIDE
     Route: 048
     Dates: start: 1991
  13. SINGULAIR [Concomitant]
     Active Substance: MONTELUKAST SODIUM
     Route: 048
  14. DETROL [Concomitant]
     Active Substance: TOLTERODINE TARTRATE
     Route: 048
  15. INSULIN 70/30 [Concomitant]
     Active Substance: INSULIN HUMAN
     Dosage: DOSE UNIT:30
     Dates: start: 20060318
  16. INSULIN 70/30 [Concomitant]
     Active Substance: INSULIN HUMAN
     Dosage: DOSE UNIT:20
     Dates: start: 20060318
  17. INSULIN 70/30 [Concomitant]
     Active Substance: INSULIN HUMAN
     Dosage: DOSE UNIT:30
     Dates: start: 20060312, end: 20060317
  18. ALDARA [Concomitant]
     Active Substance: IMIQUIMOD
  19. FLOMAX [Concomitant]
     Active Substance: TAMSULOSIN HYDROCHLORIDE
     Route: 048

REACTIONS (2)
  - Blood glucose increased [Recovering/Resolving]
  - Blood glucose decreased [Unknown]

NARRATIVE: CASE EVENT DATE: 200603
